FAERS Safety Report 8733387 (Version 2)
Quarter: 2012Q4

REPORT INFORMATION
  Report Type: 
  Country: US (occurrence: US)
  Receive Date: 20120821
  Receipt Date: 20121025
  Transmission Date: 20130627
  Serious: No
  Sender: FDA-Public Use
  Company Number: US-PFIZER INC-2012203052

PATIENT
  Age: 54 Year
  Sex: Female
  Weight: 58.05 kg

DRUGS (8)
  1. CHANTIX [Suspect]
     Indication: SMOKING CESSATION THERAPY
     Dosage: UNK, 2x/day
     Route: 048
     Dates: start: 20120601, end: 201209
  2. VITAMINS [Concomitant]
     Indication: POSTMENOPAUSE
     Dosage: UNK, daily
  3. VITAMINS [Concomitant]
     Indication: ANAEMIA
  4. GLUCOSAMINE W/CHONDROITIN SULFATES [Concomitant]
     Indication: ARTHRALGIA
     Dosage: UNK
     Dates: start: 1997
  5. CALCIUM WITH VITAMIN D [Concomitant]
     Indication: POSTMENOPAUSE
     Dosage: UNK
     Dates: start: 2007
  6. CALCIUM WITH VITAMIN D [Concomitant]
     Indication: ANAEMIA
  7. POTASSIUM [Concomitant]
     Dosage: UNK
     Dates: start: 2007
  8. SPIRIVA [Concomitant]
     Dosage: UNK, 1x/day

REACTIONS (3)
  - Sleep disorder [Recovered/Resolved]
  - Abnormal dreams [Recovered/Resolved]
  - Abnormal dreams [Recovered/Resolved]
